FAERS Safety Report 4355104-9 (Version None)
Quarter: 2004Q2

REPORT INFORMATION
  Report Type: 
  Country: None (occurrence: None)
  Receive Date: 20040504
  Receipt Date: 20040412
  Transmission Date: 20050107
  Serious: Yes (Disabling)
  Sender: FDA-Public Use
  Company Number: 28068

PATIENT

DRUGS (1)
  1. EYE STREAM [Suspect]

REACTIONS (3)
  - BLINDNESS UNILATERAL [None]
  - EYE IRRITATION [None]
  - POST PROCEDURAL COMPLICATION [None]
